FAERS Safety Report 9323682 (Version 2)
Quarter: 2013Q3

REPORT INFORMATION
  Report Type: Report from Study
  Country: NL (occurrence: NL)
  Receive Date: 20130603
  Receipt Date: 20130927
  Transmission Date: 20140515
  Serious: Yes (Death, Life-Threatening, Hospitalization, Disabling)
  Sender: FDA-Public Use
  Company Number: PHHY2013NL055233

PATIENT
  Sex: Female

DRUGS (3)
  1. ZOMETA [Suspect]
     Indication: LUNG CANCER METASTATIC
     Dosage: 4 MG/ 100 ML ONCE EVERY 4 WEEKS
     Route: 042
  2. ZOMETA [Suspect]
     Dosage: 4 MG/ 100 ML ONCE EVERY 4 WEEKS
     Route: 042
     Dates: start: 20130129
  3. ZOMETA [Suspect]
     Dosage: 4 MG/ 100 ML ONCE EVERY 4 WEEKS
     Route: 042
     Dates: start: 20130521

REACTIONS (5)
  - Pulmonary embolism [Fatal]
  - Lung neoplasm malignant [Fatal]
  - Malignant neoplasm progression [Fatal]
  - Pain [Fatal]
  - Dyspnoea [Fatal]
